FAERS Safety Report 20906330 (Version 14)
Quarter: 2024Q2

REPORT INFORMATION
  Report Type: Spontaneous
  Country: CA (occurrence: CA)
  Receive Date: 20220602
  Receipt Date: 20240617
  Transmission Date: 20240716
  Serious: Yes (Other)
  Sender: FDA-Public Use
  Company Number: CA-PFIZER INC-2021111765

PATIENT
  Age: 73 Year
  Sex: Female
  Weight: 52 kg

DRUGS (38)
  1. RUXIENCE [Suspect]
     Active Substance: RITUXIMAB-PVVR
     Indication: Granulomatosis with polyangiitis
     Dosage: 1000MG DAY 0 AND DAY 14
     Route: 042
     Dates: start: 20210511, end: 20210525
  2. RUXIENCE [Suspect]
     Active Substance: RITUXIMAB-PVVR
     Dosage: 1000 MG AT DAYS 0 AND 14
     Route: 042
     Dates: start: 20210525
  3. RUXIENCE [Suspect]
     Active Substance: RITUXIMAB-PVVR
     Dosage: 1000MG DAY 1 AND DAY 15
     Route: 042
     Dates: start: 20211130, end: 20211216
  4. RUXIENCE [Suspect]
     Active Substance: RITUXIMAB-PVVR
     Dosage: 1000 MG, DAY 1 AND DAY 15
     Route: 042
     Dates: start: 20211216
  5. RUXIENCE [Suspect]
     Active Substance: RITUXIMAB-PVVR
     Dosage: 1000 MG, DAY 1 AND DAY 15
     Route: 042
     Dates: start: 20220621, end: 20220714
  6. RUXIENCE [Suspect]
     Active Substance: RITUXIMAB-PVVR
     Dosage: 1000 MG, DAY 1 AND DAY 15 (EVERY 2 WEEKS APART)
     Route: 042
     Dates: start: 20220714
  7. RUXIENCE [Suspect]
     Active Substance: RITUXIMAB-PVVR
     Dosage: 1000 MG ,DAY 1 AND DAY 15
     Route: 042
     Dates: start: 20221221
  8. RUXIENCE [Suspect]
     Active Substance: RITUXIMAB-PVVR
     Dosage: 1000 MG ,DAY 1 AND DAY 15
     Route: 042
     Dates: start: 20221221, end: 20230105
  9. RUXIENCE [Suspect]
     Active Substance: RITUXIMAB-PVVR
     Dosage: 1000 MG ,1 DOSE OF RUXIENCE
     Route: 042
     Dates: start: 20230105
  10. RUXIENCE [Suspect]
     Active Substance: RITUXIMAB-PVVR
     Dosage: 1000 MG ,DAY 1 AND DAY 15
     Route: 042
     Dates: start: 20230710, end: 20230724
  11. RUXIENCE [Suspect]
     Active Substance: RITUXIMAB-PVVR
     Dosage: 1000 MG ,DAY 1 AND DAY 15
     Route: 042
     Dates: start: 20230724, end: 20230724
  12. RUXIENCE [Suspect]
     Active Substance: RITUXIMAB-PVVR
     Dosage: 1000 MG , (1G) DAY 0 AND DAY 14(1000MG, DAY 0)
     Route: 042
     Dates: start: 20240119
  13. RUXIENCE [Suspect]
     Active Substance: RITUXIMAB-PVVR
     Dosage: 1 G, DAY 0 AND 14
     Route: 042
     Dates: start: 20240203, end: 20240203
  14. ACETAMINOPHEN [Concomitant]
     Active Substance: ACETAMINOPHEN
     Indication: Premedication
     Dosage: 620 MG
     Route: 048
     Dates: start: 20210525, end: 20210525
  15. ACETAMINOPHEN [Concomitant]
     Active Substance: ACETAMINOPHEN
     Dosage: 620 MG
     Route: 048
     Dates: start: 20211130, end: 20211130
  16. ACETAMINOPHEN [Concomitant]
     Active Substance: ACETAMINOPHEN
     Dosage: 650 MG
     Route: 048
     Dates: start: 20211216, end: 20211216
  17. ACETAMINOPHEN [Concomitant]
     Active Substance: ACETAMINOPHEN
     Dosage: 650 MG
     Dates: start: 20221221, end: 20221221
  18. ACETAMINOPHEN [Concomitant]
     Active Substance: ACETAMINOPHEN
     Dosage: UNK
     Dates: start: 20240119, end: 20240119
  19. BENADRYL [Concomitant]
     Active Substance: DIPHENHYDRAMINE HYDROCHLORIDE
     Indication: Premedication
     Dosage: 50 MG
     Route: 048
     Dates: start: 20210525, end: 20210525
  20. BENADRYL [Concomitant]
     Active Substance: DIPHENHYDRAMINE HYDROCHLORIDE
     Dosage: 50 MG
     Route: 048
     Dates: start: 20211130, end: 20211130
  21. CODEINE [Concomitant]
     Active Substance: CODEINE
     Dosage: UNK
  22. COVID-19 VACCINE [Concomitant]
     Indication: COVID-19 immunisation
     Dosage: DOSE 5 (BOOSTER), SINGLE
     Dates: start: 20221027, end: 20221027
  23. COVID-19 VACCINE [Concomitant]
     Dosage: DOSE 4 (BOOSTER), SINGLE
  24. COVID-19 VACCINE [Concomitant]
     Dosage: DOSE 3 (BOOSTER), SINGLE
  25. COVID-19 VACCINE [Concomitant]
     Dosage: DOSE 2, SINGLE
  26. COVID-19 VACCINE [Concomitant]
     Dosage: DOSE 1, SINGLE
  27. DIPHENHYDRAMINE [Concomitant]
     Active Substance: DIPHENHYDRAMINE
     Indication: Premedication
     Dosage: 50 MG
     Route: 048
     Dates: start: 20211216, end: 20211216
  28. DIPHENHYDRAMINE [Concomitant]
     Active Substance: DIPHENHYDRAMINE
     Dosage: 50 MG
     Dates: start: 20221221, end: 20221221
  29. DIPHENHYDRAMINE [Concomitant]
     Active Substance: DIPHENHYDRAMINE
     Dosage: UNK
     Dates: start: 20240119, end: 20240119
  30. FELODIPINE [Concomitant]
     Active Substance: FELODIPINE
     Dosage: 2.5 MG, 1X/DAY
     Route: 048
  31. FELODIPINE [Concomitant]
     Active Substance: FELODIPINE
     Dosage: 1 DF, 1X/DAY, DOSE - 2.5 MG
     Route: 048
  32. INFLUENZA VIRUS VACCINE [Concomitant]
     Active Substance: INFLUENZA VIRUS VACCINE
     Indication: Immunisation
     Dosage: UNK, SINGLE
     Dates: start: 20221013, end: 20221013
  33. METHYLPREDNISOLONE [Concomitant]
     Active Substance: METHYLPREDNISOLONE
     Indication: Premedication
     Dosage: 100 MG
     Route: 042
     Dates: start: 20211216, end: 20211216
  34. METHYLPREDNISOLONE [Concomitant]
     Active Substance: METHYLPREDNISOLONE
     Dosage: 100 MG
     Dates: start: 20221221, end: 20221221
  35. METHYLPREDNISOLONE [Concomitant]
     Active Substance: METHYLPREDNISOLONE
     Dosage: UNK
     Dates: start: 20240119, end: 20240119
  36. PREDNISONE [Concomitant]
     Active Substance: PREDNISONE
     Dosage: 5 MG, 1X/DAY
     Route: 048
  37. SOLU-MEDROL [Concomitant]
     Active Substance: METHYLPREDNISOLONE SODIUM SUCCINATE
     Indication: Premedication
     Dosage: 100 MG
     Route: 042
     Dates: start: 20210525, end: 20210525
  38. SOLU-MEDROL [Concomitant]
     Active Substance: METHYLPREDNISOLONE SODIUM SUCCINATE
     Dosage: 100 MG
     Route: 042
     Dates: start: 20211130, end: 20211130

REACTIONS (10)
  - Eye operation [Unknown]
  - Blood pressure increased [Not Recovered/Not Resolved]
  - Cataract [Unknown]
  - Gout [Recovered/Resolved]
  - White coat hypertension [Unknown]
  - Heart rate decreased [Not Recovered/Not Resolved]
  - Eye infection [Unknown]
  - Off label use [Unknown]
  - Off label use [Unknown]
  - Intentional product use issue [Unknown]

NARRATIVE: CASE EVENT DATE: 20210511
